FAERS Safety Report 7833112-0 (Version None)
Quarter: 2011Q4

REPORT INFORMATION
  Report Type: 
  Country: None (occurrence: None)
  Receive Date: 20111024
  Receipt Date: 20111011
  Transmission Date: 20120403
  Serious: Yes (Life-Threatening, Hospitalization, Other)
  Sender: FDA-Public Use
  Company Number: GB-RANBAXY-2007RR-08970

PATIENT

DRUGS (9)
  1. TEMAZEPAM [Suspect]
     Indication: ANXIETY
  2. ALPRAZOLAM [Suspect]
     Indication: DEPRESSED MOOD
     Dosage: UNK
     Route: 065
  3. LORAZEPAM [Suspect]
     Dosage: 6 MG, UNK
     Route: 065
  4. LORAZEPAM [Suspect]
     Indication: ANXIETY
     Dosage: 1.5 MG, QD
     Route: 065
  5. ZOPICLONE [Concomitant]
     Dosage: 7.5 MG, QD
     Route: 065
  6. LORAZEPAM [Suspect]
     Dosage: 1 MG, BID
     Route: 065
  7. ZOPICLONE [Suspect]
     Indication: DRUG DEPENDENCE
     Dosage: 7.5 MG, QD
     Route: 065
  8. DIAZEPAM [Suspect]
     Indication: DRUG DEPENDENCE
     Dosage: 7 MG, BID
     Route: 065
  9. FLUOXETINE [Concomitant]
     Indication: DEPRESSION
     Dosage: 20 MG, QD
     Route: 065

REACTIONS (9)
  - SUICIDE ATTEMPT [None]
  - ANXIETY [None]
  - INTENTIONAL OVERDOSE [None]
  - WITHDRAWAL SYNDROME [None]
  - AGITATION [None]
  - FEAR [None]
  - PARAESTHESIA [None]
  - DRUG DEPENDENCE [None]
  - SELF INJURIOUS BEHAVIOUR [None]
